FAERS Safety Report 7330262-2 (Version None)
Quarter: 2011Q1

REPORT INFORMATION
  Report Type: 
  Country: None (occurrence: None)
  Receive Date: 20110304
  Receipt Date: 20110224
  Transmission Date: 20110831
  Serious: Yes (Death)
  Sender: FDA-Public Use
  Company Number: DE-AMGEN-DEUSP2011011132

PATIENT
  Age: 77 Year
  Sex: Female

DRUGS (3)
  1. MTX                                /00113801/ [Concomitant]
     Dosage: 15 MG, ONCE WEEKLY
     Route: 058
  2. ENBREL [Suspect]
     Indication: RHEUMATOID ARTHRITIS
     Dosage: 50 MG, ONCE WEEKLY
     Dates: start: 20101214
  3. GLUCOCORTICOIDS [Concomitant]
     Dosage: 30 MG, UNK

REACTIONS (1)
  - DEATH [None]
